FAERS Safety Report 10489819 (Version 1)
Quarter: 2014Q4

REPORT INFORMATION
  Report Type: Report from Study
  Country: NL (occurrence: NL)
  Receive Date: 20141002
  Receipt Date: 20141002
  Transmission Date: 20150528
  Serious: Yes (Hospitalization)
  Sender: FDA-Public Use
  Company Number: NL-IPSEN BIOPHARMACEUTICALS, INC.-2014-5153

PATIENT
  Age: 45 Year
  Sex: Male
  Weight: 105 kg

DRUGS (2)
  1. LANREOTIDE AUTOGEL [Suspect]
     Active Substance: LANREOTIDE
     Indication: CONGENITAL CYSTIC KIDNEY DISEASE
     Route: 065
     Dates: end: 20140729
  2. LANREOTIDE AUTOGEL [Suspect]
     Active Substance: LANREOTIDE
     Indication: PRODUCT USE ISSUE

REACTIONS (6)
  - Fatigue [None]
  - Off label use [None]
  - Nephrectomy [Not Recovered/Not Resolved]
  - Haemoglobin decreased [None]
  - Disease progression [None]
  - Congenital cystic kidney disease [None]

NARRATIVE: CASE EVENT DATE: 20140902
